FAERS Safety Report 5336490-X (Version None)
Quarter: 2007Q2

REPORT INFORMATION
  Report Type: 
  Country: None (occurrence: None)
  Receive Date: 20070523
  Receipt Date: 20070507
  Transmission Date: 20071010
  Serious: Yes (Hospitalization, Other)
  Sender: FDA-Public Use
  Company Number: S07-GER-02063-01

PATIENT
  Age: 18 Year
  Sex: Female

DRUGS (6)
  1. ESCITALOPRAM [Suspect]
     Dosage: 1 TABLET ONCE PO
     Route: 048
     Dates: start: 20070410, end: 20070410
  2. PANTOZOL (PANTOPRAZOLE SODIUM) [Suspect]
     Dosage: 1 TABLET ONCE PO
     Route: 048
     Dates: start: 20070410, end: 20070410
  3. LORAZEPAM [Suspect]
     Dosage: 2 TABLET ONCE PO
     Route: 048
     Dates: start: 20070410, end: 20070410
  4. CLONIDINE [Suspect]
     Dosage: 3 TABLET ONCE PO
     Route: 048
     Dates: start: 20070410, end: 20070410
  5. RISPERIDONE [Suspect]
     Dosage: 1 TABLET ONCE PO
     Route: 048
     Dates: start: 20070410, end: 20070410
  6. ETHANOL [Suspect]
     Dates: start: 20070410, end: 20070410

REACTIONS (4)
  - ALCOHOL USE [None]
  - FEELING DRUNK [None]
  - INTENTIONAL DRUG MISUSE [None]
  - SUICIDE ATTEMPT [None]
